FAERS Safety Report 15455019 (Version 1)
Quarter: 2018Q4

REPORT INFORMATION
  Report Type: Report from Study
  Country: IT (occurrence: IT)
  Receive Date: 20181002
  Receipt Date: 20181002
  Transmission Date: 20190204
  Serious: Yes (Other)
  Sender: FDA-Public Use
  Company Number: IT-TEVA-2018-IT-960186

PATIENT
  Age: 23 Year
  Sex: Female

DRUGS (2)
  1. NICOZID ISONIAZIDE [Suspect]
     Active Substance: ISONIAZID
     Indication: INTENTIONAL SELF-INJURY
     Route: 048
     Dates: start: 20170611, end: 20170611
  2. METFORMIN [Suspect]
     Active Substance: METFORMIN HYDROCHLORIDE
     Indication: INTENTIONAL SELF-INJURY
     Route: 048
     Dates: start: 20170611, end: 20170611

REACTIONS (2)
  - Sopor [Recovering/Resolving]
  - Delusion [Recovering/Resolving]

NARRATIVE: CASE EVENT DATE: 20170611
